FAERS Safety Report 8556519-5 (Version None)
Quarter: 2012Q2

REPORT INFORMATION
  Report Type: 
  Country: None (occurrence: None)
  Receive Date: 20120418
  Receipt Date: 20100910
  Transmission Date: 20120825
  Serious: Yes (Other)
  Sender: FDA-Public Use
  Company Number: PHHY2010US60057

PATIENT
  Sex: Female

DRUGS (1)
  1. DIOVAN [Suspect]
     Indication: HYPERTENSION

REACTIONS (3)
  - NERVOUSNESS [None]
  - HYPERTENSION [None]
  - INAPPROPRIATE SCHEDULE OF DRUG ADMINISTRATION [None]
